FAERS Safety Report 14920587 (Version 2)
Quarter: 2019Q1

REPORT INFORMATION
  Report Type: Report from Study
  Country: US (occurrence: US)
  Receive Date: 20180521
  Receipt Date: 20190212
  Transmission Date: 20190417
  Serious: Yes (Hospitalization)
  Sender: FDA-Public Use
  Company Number: US-SHIRE-US201816357

PATIENT
  Age: 8 Year
  Sex: Male
  Weight: 22.6 kg

DRUGS (4)
  1. TEDUGLUTIDE [Suspect]
     Active Substance: TEDUGLUTIDE
     Dosage: FIRST OF CYCLE
     Route: 058
     Dates: start: 20180208, end: 20180208
  2. TEDUGLUTIDE [Suspect]
     Active Substance: TEDUGLUTIDE
     Dosage: LAST
     Route: 058
     Dates: start: 20180506, end: 20180506
  3. TEDUGLUTIDE [Suspect]
     Active Substance: TEDUGLUTIDE
     Dosage: 11 IU, UNK
     Route: 065
     Dates: start: 20180414
  4. TEDUGLUTIDE [Suspect]
     Active Substance: TEDUGLUTIDE
     Indication: SHORT-BOWEL SYNDROME
     Dosage: 9 IU, UNK
     Route: 065
     Dates: start: 20170113, end: 20170705

REACTIONS (2)
  - Pyrexia [Recovered/Resolved]
  - Vascular device infection [Recovered/Resolved]

NARRATIVE: CASE EVENT DATE: 20180415
